FAERS Safety Report 4739472-1 (Version None)
Quarter: 2005Q3

REPORT INFORMATION
  Report Type: 
  Country: None (occurrence: None)
  Receive Date: 20050810
  Receipt Date: 20050325
  Transmission Date: 20060218
  Serious: No
  Sender: FDA-Public Use
  Company Number: US-GLAXOSMITHKLINE-A0551308A

PATIENT
  Age: 53 Year
  Sex: Male

DRUGS (3)
  1. PAXIL [Suspect]
     Dosage: 40MG PER DAY
     Route: 048
     Dates: start: 20050302
  2. ATENOLOL [Concomitant]
  3. TRAZODONE [Concomitant]

REACTIONS (2)
  - ANXIETY [None]
  - STOMACH DISCOMFORT [None]
